FAERS Safety Report 8022170-9 (Version None)
Quarter: 2012Q1

REPORT INFORMATION
  Report Type: 
  Country: None (occurrence: None)
  Receive Date: 20120104
  Receipt Date: 20111228
  Transmission Date: 20120608
  Serious: Yes (Other)
  Sender: FDA-Public Use
  Company Number: US-PFIZER INC-2011062548

PATIENT
  Sex: Female
  Weight: 91 kg

DRUGS (9)
  1. CELEBREX [Suspect]
     Indication: ARTHRALGIA
     Dosage: 200 MG, 2X/DAY
     Route: 048
  2. DIOVAN HCT [Concomitant]
     Dosage: UNK, 1X/DAY
  3. ZETIA [Concomitant]
     Indication: BLOOD CHOLESTEROL INCREASED
     Dosage: UNK
  4. CELEBREX [Suspect]
     Indication: ARTHRITIS
     Dosage: 200 MG, 2X/DAY
     Route: 048
     Dates: end: 20110318
  5. CELEBREX [Suspect]
     Indication: BACK PAIN
  6. CELEBREX [Suspect]
     Indication: PAIN IN EXTREMITY
  7. LYRICA [Suspect]
     Indication: NEURALGIA
     Dosage: 150 MG, 2X/DAY
     Route: 048
  8. DIOVAN HCT [Concomitant]
     Indication: HYPERTENSION
     Dosage: 1X/DAY IN THE MORNING
  9. CALCIUM [Concomitant]
     Dosage: UNK

REACTIONS (6)
  - DRUG LEVEL CHANGED [None]
  - ATRIAL FIBRILLATION [None]
  - ARTHRALGIA [None]
  - ARTHROPATHY [None]
  - BODY HEIGHT DECREASED [None]
  - THROMBOSIS [None]
